FAERS Safety Report 13974125 (Version 10)
Quarter: 2018Q2

REPORT INFORMATION
  Report Type: Spontaneous
  Country: ES (occurrence: ES)
  Receive Date: 20170915
  Receipt Date: 20180402
  Transmission Date: 20180711
  Serious: Yes (Hospitalization, Other)
  Sender: FDA-Public Use
  Company Number: ES-ROCHE-1990170

PATIENT
  Age: 66 Year
  Sex: Male

DRUGS (17)
  1. SEPTRIN [Suspect]
     Active Substance: SULFAMETHOXAZOLE\TRIMETHOPRIM
     Indication: ANTIFUNGAL PROPHYLAXIS
  2. CELLCEPT [Suspect]
     Active Substance: MYCOPHENOLATE MOFETIL\MYCOPHENOLATE MOFETIL HYDROCHLORIDE
     Route: 048
     Dates: start: 2017
  3. VALCYTE [Suspect]
     Active Substance: VALGANCICLOVIR HYDROCHLORIDE
     Indication: ANTIVIRAL PROPHYLAXIS
     Dosage: AT LUNCH TIME?SUBSEQUENT DOSE 450 MG PER DAY ON 07/JUL/2017
     Route: 048
     Dates: start: 20170707
  4. VALCYTE [Suspect]
     Active Substance: VALGANCICLOVIR HYDROCHLORIDE
     Indication: ANTIVIRAL PROPHYLAXIS
  5. PROGRAF [Suspect]
     Active Substance: TACROLIMUS\TACROLIMUS ANHYDROUS
     Dosage: 4.5 MG BEFORE BREAKFAST AND 4 MG BEFORE DINNER
     Route: 048
     Dates: start: 20170101
  6. PREDNISONE. [Suspect]
     Active Substance: PREDNISONE
     Dosage: DAILY
     Route: 048
     Dates: start: 20170101
  7. CELLCEPT [Suspect]
     Active Substance: MYCOPHENOLATE MOFETIL\MYCOPHENOLATE MOFETIL HYDROCHLORIDE
     Indication: IMMUNOSUPPRESSION
     Dosage: 2 AT BREAKFAST AND 2 AT DINNER
     Route: 048
     Dates: start: 20170703, end: 2017
  8. SEPTRIN [Suspect]
     Active Substance: SULFAMETHOXAZOLE\TRIMETHOPRIM
     Indication: ANTIFUNGAL PROPHYLAXIS
     Dosage: SULFAMETHOXAZOLE 400 MG]/TRIMETHOPRIM 80 MG AT LUNCH TIME
     Route: 048
     Dates: start: 20170707
  9. PARACETAMOL [Concomitant]
     Active Substance: ACETAMINOPHEN
     Dosage: (2 AT BREAKFAST - 2 AT LUNCH - 2 AT DINNER)
     Route: 048
  10. PROGRAF [Suspect]
     Active Substance: TACROLIMUS\TACROLIMUS ANHYDROUS
     Indication: IMMUNOSUPPRESSION
     Dosage: 1 IN MORNING AND 1 BEFORE DINNER
     Route: 048
     Dates: start: 20170704
  11. OMEPRAZOLE. [Concomitant]
     Active Substance: OMEPRAZOLE
     Dosage: AT BREAKFAST
     Route: 065
  12. PREDNISONE. [Suspect]
     Active Substance: PREDNISONE
     Dosage: 60 MG, ONCE DAILY (30 MG TWICE DAILY) AT BREAKFAST TIME.
     Route: 048
     Dates: start: 20170703, end: 2017
  13. ZITROMAX [Suspect]
     Active Substance: AZITHROMYCIN
     Indication: IMMUNOMODULATORY THERAPY
     Dosage: ON L-X-V AT LUNCH
     Route: 048
     Dates: start: 20170801
  14. PREDNISONE. [Suspect]
     Active Substance: PREDNISONE
     Indication: IMMUNOSUPPRESSION
     Dosage: AT BREAKFAST TIME
     Route: 048
     Dates: start: 20170101
  15. ABELCET [Concomitant]
     Active Substance: AMPHOTERICIN B\DIMYRISTOYLPHOSPHATIDYLCHOLINE, DL-\DIMYRISTOYLPHOSPHATIDYLGLYCEROL, DL-
     Dosage: VIA RESP INHALATION 1/2 VIAL OF 100 MG (ON MONDAYS IN THE AFTERNOON)
     Route: 055
  16. LORAZEPAM. [Concomitant]
     Active Substance: LORAZEPAM
     Dosage: AT BEDTIME
     Route: 065
  17. DEXKETOPROFEN [Concomitant]
     Active Substance: DEXKETOPROFEN
     Dosage: 1 AT BREAKFAST - 1 AT LUNCH - 1 AT DINNER
     Route: 048

REACTIONS (9)
  - Hypoaesthesia [Unknown]
  - Paraesthesia [Unknown]
  - Large intestinal ulcer [Unknown]
  - Fatigue [Unknown]
  - Gait disturbance [Unknown]
  - Flank pain [Unknown]
  - Bone pain [Unknown]
  - Pyrexia [Not Recovered/Not Resolved]
  - Myalgia [Unknown]

NARRATIVE: CASE EVENT DATE: 2017
